FAERS Safety Report 7747580-6 (Version None)
Quarter: 2011Q3

REPORT INFORMATION
  Report Type: 
  Country: None (occurrence: None)
  Receive Date: 20110913
  Receipt Date: 20110906
  Transmission Date: 20111222
  Serious: Yes (Death, Life-Threatening, Hospitalization)
  Sender: FDA-Public Use
  Company Number: IN-ELI_LILLY_AND_COMPANY-IN201109001307

PATIENT
  Age: 70 Year
  Sex: Male

DRUGS (2)
  1. ALIMTA [Suspect]
     Indication: ADENOCARCINOMA
     Dosage: 800 MG, UNKNOWN
     Route: 042
     Dates: start: 20110810
  2. CARBOPLATIN [Concomitant]
     Dosage: 460 MG, UNKNOWN

REACTIONS (4)
  - THROMBOCYTOPENIA [None]
  - ANAEMIA [None]
  - DEATH [None]
  - NEUTROPENIA [None]
